FAERS Safety Report 11947425 (Version 2)
Quarter: 2016Q2

REPORT INFORMATION
  Report Type: Spontaneous
  Country: US (occurrence: US)
  Receive Date: 20160125
  Receipt Date: 20160413
  Transmission Date: 20160815
  Serious: No
  Sender: FDA-Public Use
  Company Number: US-JNJFOC-20160106962

PATIENT
  Sex: Female
  Weight: 72.58 kg

DRUGS (15)
  1. FISH OIL OMEGA 3 [Concomitant]
     Indication: ROUTINE HEALTH MAINTENANCE
     Dosage: MORE THAN 10 YEARS
     Route: 065
  2. YEAST [Concomitant]
     Active Substance: YEAST
     Indication: BLOOD CHOLESTEROL
     Dosage: FEW MONTHS
     Route: 065
  3. YEAST [Concomitant]
     Active Substance: YEAST
     Indication: BLOOD PRESSURE MEASUREMENT
     Dosage: FEW MONTHS
     Route: 065
  4. BENICAR HCT [Concomitant]
     Active Substance: HYDROCHLOROTHIAZIDE\OLMESARTAN MEDOXOMIL
     Indication: HYPERTENSION
     Dosage: 40/12.5 MG
     Route: 065
     Dates: start: 201412
  5. COENZYME Q10 [Concomitant]
     Active Substance: UBIDECARENONE
     Indication: ROUTINE HEALTH MAINTENANCE
     Dosage: YEARS
     Route: 065
  6. MENS ROGAINE EXTRA STRENGTH [Suspect]
     Active Substance: MINOXIDIL
     Indication: ALOPECIA
     Dosage: SILVER DOLLAR SIZED AMOUNT
     Route: 061
  7. ARMOUR THYROID [Concomitant]
     Active Substance: THYROID, PORCINE
     Indication: BASEDOW^S DISEASE
     Dosage: YEARS
     Route: 065
  8. FINASTERIDE. [Concomitant]
     Active Substance: FINASTERIDE
     Indication: HAIR DISORDER
     Dosage: 5-6 YEARS
     Route: 065
  9. SIMVASTATIN. [Concomitant]
     Active Substance: SIMVASTATIN
     Indication: BLOOD CHOLESTEROL INCREASED
     Dosage: YEARS
     Route: 065
  10. MENS ROGAINE EXTRA STRENGTH [Suspect]
     Active Substance: MINOXIDIL
     Route: 061
  11. PRISTIQ EXTENDED-RELEASE [Concomitant]
     Active Substance: DESVENLAFAXINE SUCCINATE
     Indication: ANXIETY
     Dosage: 4-5 YEARS
     Route: 065
  12. CINNAMON. [Concomitant]
     Active Substance: CINNAMON
     Indication: NUTRITIONAL SUPPLEMENTATION
     Dosage: COUPLE OF WEEKS
     Route: 065
  13. SELENIUM [Concomitant]
     Active Substance: SELENIUM
     Indication: THYROID DISORDER
     Dosage: 5-6 YEARS
     Route: 065
  14. VITAMIN B12 [Concomitant]
     Active Substance: CYANOCOBALAMIN
     Indication: ROUTINE HEALTH MAINTENANCE
     Route: 065
  15. ONE A DAY WOMEN^S [Concomitant]
     Active Substance: MINERALS\VITAMINS
     Indication: ROUTINE HEALTH MAINTENANCE
     Dosage: MORE THAN 10 YEARS
     Route: 065

REACTIONS (4)
  - Alopecia [Recovered/Resolved]
  - Expired product administered [Recovered/Resolved]
  - Drug ineffective [Unknown]
  - Wrong patient received medication [Recovered/Resolved]
